FAERS Safety Report 14282157 (Version 10)
Quarter: 2019Q3

REPORT INFORMATION
  Report Type: Spontaneous
  Country: US (occurrence: US)
  Receive Date: 20171213
  Receipt Date: 20190829
  Transmission Date: 20191004
  Serious: Yes (Hospitalization, Other)
  Sender: FDA-Public Use
  Company Number: US-PFIZER INC-2017526600

PATIENT
  Age: 60 Year
  Sex: Female
  Weight: 91 kg

DRUGS (3)
  1. LYRICA [Suspect]
     Active Substance: PREGABALIN
     Dosage: 100 MG, UNK (TAKES ONE AT NIGHT AND SOMETIMES TWO)
     Route: 048
     Dates: start: 201512
  2. LYRICA [Suspect]
     Active Substance: PREGABALIN
     Indication: NEUROPATHY PERIPHERAL
     Dosage: UNK (TAKES ONE AT NIGHT AND SOMETIMES TWO)
     Dates: start: 2007, end: 201507
  3. LYRICA [Suspect]
     Active Substance: PREGABALIN
     Dosage: 100 MG, 3X/DAY (TAKE 1 CAPSULE (100 MG TOTAL) BY MOUTH 3 (THREE) TIMES A DAY)
     Route: 048
     Dates: start: 20190325

REACTIONS (19)
  - Haemoglobin decreased [Unknown]
  - Peripheral swelling [Unknown]
  - Bone disorder [Unknown]
  - Hypoaesthesia [Unknown]
  - Hip fracture [Recovered/Resolved with Sequelae]
  - Meniscus injury [Recovered/Resolved with Sequelae]
  - Fall [Unknown]
  - Intentional product misuse [Unknown]
  - Procedural haemorrhage [Unknown]
  - Tibia fracture [Unknown]
  - Pain in extremity [Unknown]
  - Loss of personal independence in daily activities [Unknown]
  - Red blood cell sedimentation rate increased [Unknown]
  - Insomnia [Unknown]
  - Visual field defect [Unknown]
  - Gait disturbance [Unknown]
  - Pain [Unknown]
  - Muscular weakness [Unknown]
  - Anxiety [Unknown]

NARRATIVE: CASE EVENT DATE: 2007
